FAERS Safety Report 5792854-1 (Version None)
Quarter: 2008Q2

REPORT INFORMATION
  Report Type: 
  Country: None (occurrence: None)
  Receive Date: 20080624
  Receipt Date: 20080609
  Transmission Date: 20081010
  Serious: No
  Sender: FDA-Public Use
  Company Number: 002#2#2008-00240

PATIENT
  Age: 82 Year
  Sex: Female

DRUGS (7)
  1. NEUPRO [Suspect]
     Indication: PARKINSON'S DISEASE
     Dosage: 2MG/24H,1 IN 1; 4MG/24H,1 IN1 D,TRANSDERMAL
     Route: 062
     Dates: start: 20070901, end: 20071001
  2. NEUPRO [Suspect]
     Indication: PARKINSON'S DISEASE
     Dosage: 2MG/24H,1 IN 1; 4MG/24H,1 IN1 D,TRANSDERMAL
     Route: 062
     Dates: start: 20071001, end: 20080521
  3. AMANTADINE HCL [Concomitant]
  4. TOPROL-XL [Concomitant]
  5. ASPIRIN [Concomitant]
  6. MULTI-VITAMIN [Concomitant]
  7. PRILOSEC [Concomitant]

REACTIONS (6)
  - APPLICATION SITE ERYTHEMA [None]
  - BALANCE DISORDER [None]
  - INSOMNIA [None]
  - MUSCLE SPASMS [None]
  - PHARMACEUTICAL PRODUCT COMPLAINT [None]
  - TREMOR [None]
